FAERS Safety Report 14933600 (Version 3)
Quarter: 2018Q3

REPORT INFORMATION
  Report Type: Report from Study
  Country: CO (occurrence: CO)
  Receive Date: 20180524
  Receipt Date: 20180817
  Transmission Date: 20181010
  Serious: Yes (Hospitalization, Other)
  Sender: FDA-Public Use
  Company Number: CO-ASTELLAS-2018US002836

PATIENT
  Age: 39 Year
  Sex: Male
  Weight: 41 kg

DRUGS (3)
  1. TACROLIMUS. [Suspect]
     Active Substance: TACROLIMUS
     Route: 048
     Dates: start: 20151213
  2. TACROLIMUS. [Suspect]
     Active Substance: TACROLIMUS
     Indication: RENAL TRANSPLANT
     Route: 048
     Dates: start: 20151213
  3. TACROLIMUS. [Suspect]
     Active Substance: TACROLIMUS
     Indication: RENAL TRANSPLANT
     Route: 048
     Dates: start: 20151213

REACTIONS (11)
  - Nail discolouration [Unknown]
  - Haematoma [Recovered/Resolved]
  - Product supply issue [Unknown]
  - Peripheral vascular disorder [Unknown]
  - Drug dose omission [Unknown]
  - Drug dose omission [Unknown]
  - Fistula [Unknown]
  - Pain in extremity [Recovering/Resolving]
  - Skin discolouration [Unknown]
  - Product supply issue [Unknown]
  - Kidney transplant rejection [Recovered/Resolved]

NARRATIVE: CASE EVENT DATE: 201703
